FAERS Safety Report 6633978-6 (Version None)
Quarter: 2010Q1

REPORT INFORMATION
  Report Type: 
  Country: None (occurrence: None)
  Receive Date: 20100315
  Receipt Date: 20100301
  Transmission Date: 20100710
  Serious: Yes (Hospitalization)
  Sender: FDA-Public Use
  Company Number: FR-CELGENEUS-056-20785-09092239

PATIENT
  Sex: Female
  Weight: 90.7 kg

DRUGS (13)
  1. THALIDOMIDE [Suspect]
     Indication: MULTIPLE MYELOMA
     Route: 048
     Dates: start: 20090327
  2. THALIDOMIDE [Suspect]
     Route: 048
     Dates: start: 20090529, end: 20090730
  3. THALIDOMIDE [Suspect]
     Route: 048
     Dates: start: 20090731, end: 20090923
  4. DEXAMETHASONE [Suspect]
     Indication: MULTIPLE MYELOMA
     Route: 048
     Dates: start: 20090327
  5. DEXAMETHASONE [Suspect]
     Route: 048
     Dates: start: 20090529, end: 20090914
  6. LOXEN [Concomitant]
     Route: 048
     Dates: start: 20070101
  7. BACTRIM [Concomitant]
     Indication: PROPHYLAXIS
     Route: 048
     Dates: start: 20090327
  8. ZELITREX [Concomitant]
     Indication: INFECTION PROPHYLAXIS
     Route: 048
     Dates: start: 20090327, end: 20090924
  9. SPECIAFOLDINE [Concomitant]
     Indication: INFECTION PROPHYLAXIS
     Route: 048
     Dates: start: 20090327
  10. MINISINTROM [Concomitant]
     Indication: THROMBOSIS PROPHYLAXIS
     Route: 048
     Dates: start: 20090327, end: 20090924
  11. INIPOMP [Concomitant]
     Indication: PROPHYLAXIS AGAINST GASTROINTESTINAL ULCER
     Route: 048
     Dates: start: 20090327, end: 20090924
  12. ZESTORETIC [Concomitant]
     Route: 048
     Dates: start: 20070101
  13. DIAMICRON [Concomitant]
     Route: 048
     Dates: start: 20070101

REACTIONS (1)
  - SIGMOIDITIS [None]
